FAERS Safety Report 7274352-1 (Version None)
Quarter: 2011Q1

REPORT INFORMATION
  Report Type: 
  Country: None (occurrence: None)
  Receive Date: 20110131
  Receipt Date: 20110131
  Transmission Date: 20110831
  Serious: No
  Sender: FDA-Public Use
  Company Number: None

PATIENT
  Age: 76 Year
  Sex: Female

DRUGS (10)
  1. WELLBUTRIN [Concomitant]
  2. LOPRESSOR [Concomitant]
  3. OMEPRAZOLE [Concomitant]
  4. REVLIMID [Suspect]
     Indication: MULTIPLE MYELOMA
     Dosage: 5MG DAILY ORALLY
     Route: 048
     Dates: start: 20100901, end: 20110118
  5. ACYCLOVIR [Concomitant]
  6. EPOGEN [Concomitant]
  7. NIACIN [Concomitant]
  8. DULCOLAX [Concomitant]
  9. ZOCOR [Concomitant]
  10. LASIX [Concomitant]

REACTIONS (1)
  - RASH [None]
